FAERS Safety Report 23182362 (Version 1)
Quarter: 2023Q4

REPORT INFORMATION
  Report Type: Spontaneous
  Country: US (occurrence: None)
  Receive Date: 20231114
  Receipt Date: 20231114
  Transmission Date: 20240110
  Serious: Yes (Hospitalization)
  Sender: FDA-Public Use
  Company Number: None

PATIENT
  Age: 65 Year
  Sex: Male
  Weight: 102 kg

DRUGS (1)
  1. CISPLATIN [Suspect]
     Active Substance: CISPLATIN
     Dates: end: 20231111

REACTIONS (4)
  - Weight decreased [None]
  - Oropharyngeal pain [None]
  - Oral pain [None]
  - Dysphagia [None]

NARRATIVE: CASE EVENT DATE: 20231108
